FAERS Safety Report 23897494 (Version 1)
Quarter: 2024Q2

REPORT INFORMATION
  Report Type: Spontaneous
  Country: PL (occurrence: PL)
  Receive Date: 20240524
  Receipt Date: 20240524
  Transmission Date: 20240716
  Serious: Yes (Other)
  Sender: FDA-Public Use
  Company Number: None

PATIENT
  Age: 45 Year
  Sex: Female
  Weight: 56 kg

DRUGS (2)
  1. ESCITALOPRAM [Suspect]
     Active Substance: ESCITALOPRAM OXALATE
     Indication: Anxiety
     Dosage: ESCITALOPRAM ACTAVIS
     Route: 048
     Dates: start: 20231217, end: 20240201
  2. TRAZODONE HYDROCHLORIDE [Suspect]
     Active Substance: TRAZODONE HYDROCHLORIDE
     Indication: Insomnia
     Dosage: CR 150 MG EXTENDED-RELEASE TABLETS
     Route: 065
     Dates: start: 20231101, end: 20240202

REACTIONS (4)
  - Vision blurred [Not Recovered/Not Resolved]
  - Cardiac disorder [Unknown]
  - Paraesthesia [Unknown]
  - Heavy menstrual bleeding [Unknown]

NARRATIVE: CASE EVENT DATE: 20231217
